FAERS Safety Report 6108598-2 (Version None)
Quarter: 2009Q1

REPORT INFORMATION
  Report Type: 
  Country: None (occurrence: None)
  Receive Date: 20090309
  Receipt Date: 20090304
  Transmission Date: 20090719
  Serious: Yes (Hospitalization)
  Sender: FDA-Public Use
  Company Number: FR-GILEAD-2009-0020675

PATIENT
  Sex: Male
  Weight: 83 kg

DRUGS (3)
  1. VIREAD [Suspect]
     Indication: HIV INFECTION
     Dates: start: 20050201, end: 20070117
  2. COMBIVIR [Suspect]
     Indication: HIV INFECTION
     Dates: start: 20020101, end: 20070117
  3. VIRAMUNE [Suspect]
     Indication: HIV INFECTION
     Route: 048
     Dates: start: 20020101, end: 20050201

REACTIONS (1)
  - DEEP VEIN THROMBOSIS [None]
